FAERS Safety Report 9096068 (Version 1)
Quarter: 2013Q1

REPORT INFORMATION
  Report Type: Report from Study
  Country: US (occurrence: US)
  Receive Date: 20130207
  Receipt Date: 20130207
  Transmission Date: 20140127
  Serious: Yes (Hospitalization)
  Sender: FDA-Public Use
  Company Number: US-ROCHE-GNE303782

PATIENT
  Age: 91 None
  Sex: Male

DRUGS (1)
  1. RANIBIZUMAB [Suspect]
     Indication: MACULAR DEGENERATION
     Dosage: 0.05 ML, PRN
     Route: 050
     Dates: start: 20100601

REACTIONS (2)
  - Hypertension [Recovered/Resolved]
  - Sinus bradycardia [Unknown]
